FAERS Safety Report 24247049 (Version 4)
Quarter: 2024Q3

REPORT INFORMATION
  Report Type: Report from Study
  Country: US (occurrence: US)
  Receive Date: 20240826
  Receipt Date: 20240916
  Transmission Date: 20241016
  Serious: Yes (Death, Hospitalization)
  Sender: ROCHE
  Company Number: US-ROCHE-10000060824

PATIENT
  Age: 66 Year
  Sex: Female
  Weight: 183 kg

DRUGS (9)
  1. OCREVUS [Suspect]
     Active Substance: OCRELIZUMAB
     Indication: Relapsing multiple sclerosis
     Dosage: 300 MG SINGLE-USE VIAL
     Route: 042
     Dates: start: 2021, end: 20240514
  2. LOSARTAN [Concomitant]
     Active Substance: LOSARTAN\LOSARTAN POTASSIUM
  3. TOPIRAMATE [Concomitant]
     Active Substance: TOPIRAMATE
  4. ZOLPIDEM [Concomitant]
     Active Substance: ZOLPIDEM TARTRATE
  5. LORAZEPAM [Concomitant]
     Active Substance: LORAZEPAM
  6. DULOXETINE [Concomitant]
     Active Substance: DULOXETINE
  7. OZEMPIC [Concomitant]
     Active Substance: SEMAGLUTIDE
  8. BACLOFEN [Concomitant]
     Active Substance: BACLOFEN
  9. ESOMEPRAZOLE [Concomitant]
     Active Substance: ESOMEPRAZOLE

REACTIONS (2)
  - Pneumonia [Fatal]
  - COVID-19 [Fatal]
